FAERS Safety Report 16070668 (Version 1)
Quarter: 2019Q1

REPORT INFORMATION
  Report Type: Spontaneous
  Country: US (occurrence: US)
  Receive Date: 20190314
  Receipt Date: 20190314
  Transmission Date: 20190418
  Serious: No
  Sender: FDA-Public Use
  Company Number: US-HIKMA PHARMACEUTICALS USA INC.-US-H14001-18-07650

PATIENT
  Age: 52 Year
  Sex: Female

DRUGS (1)
  1. LIDOCAINE HYDROCHLORIDE 1% [Suspect]
     Active Substance: LIDOCAINE HYDROCHLORIDE
     Indication: PRODUCT USED FOR UNKNOWN INDICATION
     Route: 058
     Dates: start: 20180929

REACTIONS (9)
  - Injection site erythema [Unknown]
  - Injection site induration [Recovered/Resolved with Sequelae]
  - Drug ineffective [Recovered/Resolved]
  - Pain [Recovered/Resolved]
  - Injection site swelling [Unknown]
  - Injection site vesicles [Unknown]
  - Injection site pain [Recovered/Resolved]
  - Drug hypersensitivity [Recovered/Resolved]
  - Intentional product misuse [Recovered/Resolved]

NARRATIVE: CASE EVENT DATE: 201809
